FAERS Safety Report 6690238-5 (Version None)
Quarter: 2010Q2

REPORT INFORMATION
  Report Type: 
  Country: None (occurrence: None)
  Receive Date: 20100421
  Receipt Date: 20100412
  Transmission Date: 20101027
  Serious: Yes (Death)
  Sender: FDA-Public Use
  Company Number: JP-ROCHE-689668

PATIENT
  Sex: Male
  Weight: 63 kg

DRUGS (6)
  1. XELODA [Suspect]
     Indication: LARGE INTESTINE CARCINOMA
     Dosage: NOTE: 2 WEEKS ADMINISTRATION FOLLOWED BY ONE WEEK REST.
     Route: 048
     Dates: start: 20091027, end: 20100227
  2. BIO-THREE [Concomitant]
     Route: 048
     Dates: start: 20091020, end: 20100301
  3. MAGMITT [Concomitant]
     Route: 048
     Dates: start: 20091020, end: 20100301
  4. LENDORMIN [Concomitant]
     Route: 054
     Dates: start: 20091020, end: 20100301
  5. PYDOXAL [Concomitant]
     Route: 048
     Dates: start: 20091027, end: 20100301
  6. KERATINAMIN [Concomitant]
     Dosage: FORM: OINTMENT AND CREAM.  NOTE: DOSAGE IS UNCERTAIN.
     Route: 061
     Dates: start: 20091027, end: 20100301

REACTIONS (6)
  - BLOOD PRESSURE DECREASED [None]
  - BONE MARROW FAILURE [None]
  - DISEASE PROGRESSION [None]
  - PALMAR-PLANTAR ERYTHRODYSAESTHESIA SYNDROME [None]
  - PANCYTOPENIA [None]
  - RESPIRATORY FAILURE [None]
